FAERS Safety Report 9866082 (Version 1)
Quarter: 2014Q1

REPORT INFORMATION
  Report Type: Spontaneous
  Country: US (occurrence: US)
  Receive Date: 20140203
  Receipt Date: 20140203
  Transmission Date: 20141002
  Serious: No
  Sender: FDA-Public Use
  Company Number: US-ALLERGAN-1314938US

PATIENT
  Age: 76 Year
  Sex: Female

DRUGS (17)
  1. RESTASIS [Suspect]
     Indication: DRY EYE
     Dosage: 2 GTT, BID
     Route: 047
     Dates: start: 201303
  2. GENTEAL                            /00445101/ [Concomitant]
     Indication: DRY EYE
     Dosage: UNK UNK, PRN
     Route: 047
     Dates: end: 201303
  3. SYSTANE ULTRA [Concomitant]
     Indication: DRY EYE
     Dosage: UNK UNK, PRN
     Route: 047
     Dates: start: 201303
  4. METFORMIN [Concomitant]
     Indication: DIABETES MELLITUS
     Dosage: 1000 MG, BID
     Route: 048
  5. AMBIEN [Concomitant]
     Indication: PRODUCT USED FOR UNKNOWN INDICATION
     Dosage: 10 MG, QHS
     Route: 048
  6. PRILOSEC                           /00661201/ [Concomitant]
     Indication: GASTRIC DISORDER
     Dosage: 40 MG, QAM
     Route: 048
  7. PREMARIN [Concomitant]
     Indication: PRODUCT USED FOR UNKNOWN INDICATION
     Dosage: UNK UNK, BI-WEEKLY
     Route: 067
  8. NITROGLYCERIN OINTMENT 0.125% [Concomitant]
     Indication: HAEMORRHOIDS
     Dosage: UNK, TID
  9. LYRICA [Concomitant]
     Indication: ARTHRITIS
     Dosage: 100 MG, QHS
     Route: 048
  10. LYRICA [Concomitant]
     Indication: FIBROMYALGIA
  11. SYNTHROID [Concomitant]
     Indication: HYPOTHYROIDISM
     Dosage: 100 ?G, QD
     Route: 048
  12. FENOFIBRATE [Concomitant]
     Indication: BLOOD CHOLESTEROL INCREASED
     Dosage: 100 MG, QAM
     Route: 048
  13. TRAMADOL WITH TYLENOL [Concomitant]
     Indication: ARTHRITIS
     Dosage: 50 MG, BID
     Route: 048
  14. TRAMADOL WITH TYLENOL [Concomitant]
     Indication: FIBROMYALGIA
  15. ALPRAZOLAM [Concomitant]
     Indication: ANXIETY
     Dosage: 0.5 MG, BID
     Route: 048
  16. ALPRAZOLAM [Concomitant]
     Indication: FIBROMYALGIA
  17. IPRATROPIUM BROMIDE [Concomitant]
     Indication: HYPERSENSITIVITY
     Dosage: UNK UNK, TID
     Route: 045

REACTIONS (2)
  - Instillation site pain [Not Recovered/Not Resolved]
  - Eye pain [Unknown]
